FAERS Safety Report 6718719-6 (Version None)
Quarter: 2010Q2

REPORT INFORMATION
  Report Type: 
  Country: None (occurrence: None)
  Receive Date: 20100505
  Receipt Date: 20100420
  Transmission Date: 20101027
  Serious: Yes (Hospitalization)
  Sender: FDA-Public Use
  Company Number: 2010-1363

PATIENT
  Age: 69 Year
  Sex: Male

DRUGS (1)
  1. APO-GO PFS (APO-GO) (APOMORPHINE HYDROCHLORIDE) (APOMORPHINE HYDROCHLO [Suspect]
     Indication: DRUG USE FOR UNKNOWN INDICATION
     Dosage: 16 HOURS PER DAY), SUBCUTANEOUS
     Route: 058
     Dates: start: 20090512, end: 20100401

REACTIONS (1)
  - SYNCOPE [None]
